FAERS Safety Report 22985380 (Version 5)
Quarter: 2025Q1

REPORT INFORMATION
  Report Type: Report from Study
  Country: US (occurrence: US)
  Receive Date: 20230926
  Receipt Date: 20250317
  Transmission Date: 20250409
  Serious: Yes (Other)
  Sender: NOVARTIS
  Company Number: US-002147023-NVSC2023US207157

PATIENT
  Sex: Male

DRUGS (1)
  1. KESIMPTA [Suspect]
     Active Substance: OFATUMUMAB
     Indication: Multiple sclerosis
     Route: 065

REACTIONS (7)
  - Pneumonia [Unknown]
  - Illness [Unknown]
  - Infection [Unknown]
  - Device defective [Unknown]
  - Decreased immune responsiveness [Unknown]
  - Injection site mass [Unknown]
  - Injection site haemorrhage [Unknown]
